FAERS Safety Report 25589384 (Version 1)
Quarter: 2025Q3

REPORT INFORMATION
  Report Type: Spontaneous
  Country: US (occurrence: US)
  Receive Date: 20250722
  Receipt Date: 20250722
  Transmission Date: 20251020
  Serious: No
  Sender: SUNOVION
  Company Number: US-SMPA-2025SPA008596AA

PATIENT

DRUGS (5)
  1. ORGOVYX [Suspect]
     Active Substance: RELUGOLIX
     Indication: Prostate cancer
     Dosage: UNK, QD
     Route: 048
  2. ERLEADA [Concomitant]
     Active Substance: APALUTAMIDE
     Indication: Prostate cancer
     Dosage: 60, QD
     Route: 065
  3. METOPROLOL [Concomitant]
     Active Substance: METOPROLOL
     Indication: Hypertension
     Dosage: 50 MG, QD
     Route: 065
  4. CITALOPRAM [Concomitant]
     Active Substance: CITALOPRAM
     Indication: Anxiety
     Dosage: 40 MG, QD
     Route: 065
  5. ATORVASTATIN [Concomitant]
     Active Substance: ATORVASTATIN
     Indication: Blood cholesterol increased
     Route: 065

REACTIONS (3)
  - Dyspnoea [Unknown]
  - Breast pain [Recovered/Resolved]
  - Therapy interrupted [Recovered/Resolved]
